FAERS Safety Report 11176946 (Version 1)
Quarter: 2015Q2

REPORT INFORMATION
  Report Type: Spontaneous
  Country: SE (occurrence: SE)
  Receive Date: 20150610
  Receipt Date: 20150610
  Transmission Date: 20150821
  Serious: Yes (Other)
  Sender: FDA-Public Use
  Company Number: SE-TEVA-568056ISR

PATIENT
  Age: 80 Year
  Sex: Male

DRUGS (5)
  1. ATORVASTATIN TEVA [Suspect]
     Active Substance: ATORVASTATIN
  2. LOSARTAN KRKA [Suspect]
     Active Substance: LOSARTAN
     Dosage: 100 MILLIGRAM DAILY;
  3. HYDROCHLOROTHIAZIDE ORIFARM [Suspect]
     Active Substance: HYDROCHLOROTHIAZIDE
  4. FELODIPIN HEXAL [Suspect]
     Active Substance: FELODIPINE
  5. BISOPROLOL ORIFARM [Suspect]
     Active Substance: BISOPROLOL

REACTIONS (10)
  - Myalgia [Unknown]
  - Rash [Not Recovered/Not Resolved]
  - Pruritus [Not Recovered/Not Resolved]
  - Swelling face [Unknown]
  - Muscular weakness [Unknown]
  - Psoriasis [Not Recovered/Not Resolved]
  - Pharyngeal oedema [Unknown]
  - Arthralgia [Unknown]
  - Exfoliative rash [Not Recovered/Not Resolved]
  - Lip swelling [Unknown]
